FAERS Safety Report 9184387 (Version 2)
Quarter: 2013Q2

REPORT INFORMATION
  Report Type: Report from Study
  Country: DE (occurrence: DE)
  Receive Date: 20130322
  Receipt Date: 20130405
  Transmission Date: 20140414
  Serious: Yes (Hospitalization)
  Sender: FDA-Public Use
  Company Number: DE-PFIZER INC-2013084650

PATIENT
  Age: 76 Year
  Sex: Male

DRUGS (6)
  1. TEMSIROLIMUS [Suspect]
     Dosage: 50 MG, UNK
     Dates: start: 20130217, end: 20130305
  2. BENDAMUSTINE [Suspect]
     Dosage: 171 MG, UNK
     Dates: start: 20130216, end: 20130217
  3. RITUXIMAB [Suspect]
     Dosage: 712 MG, UNK
     Dates: start: 20130216, end: 20130216
  4. PANTOZOL [Concomitant]
     Dosage: 40 MG ONCE DAILY IN THE MORNING
     Dates: start: 20130226
  5. AMPHO-MORONAL [Concomitant]
     Dosage: 500 MG, 2X/DAY (1-0-1)
     Dates: start: 20130226, end: 20130303
  6. UNACID [Concomitant]
     Dosage: 500 MG, 2X/DAY (1-0-1)
     Dates: start: 20130226, end: 20130313

REACTIONS (1)
  - Pyrexia [Not Recovered/Not Resolved]
